FAERS Safety Report 20673859 (Version 1)
Quarter: 2022Q2

REPORT INFORMATION
  Report Type: Spontaneous
  Country: US (occurrence: US)
  Receive Date: 20220405
  Receipt Date: 20220405
  Transmission Date: 20220721
  Serious: No
  Sender: FDA-Public Use
  Company Number: US-Covis Pharma GmbH-2022COV00968

PATIENT
  Sex: Male

DRUGS (1)
  1. ALVESCO [Suspect]
     Active Substance: CICLESONIDE
     Indication: Asthma
     Route: 065

REACTIONS (3)
  - Dyspnoea [Unknown]
  - Cough [Unknown]
  - Incorrect dose administered by product [Unknown]
